FAERS Safety Report 23363023 (Version 1)
Quarter: 2024Q1

REPORT INFORMATION
  Report Type: Spontaneous
  Country: US (occurrence: US)
  Receive Date: 20240103
  Receipt Date: 20240103
  Transmission Date: 20240410
  Serious: No
  Sender: FDA-Public Use
  Company Number: US-PFIZER INC-202300457895

PATIENT
  Age: 72 Year
  Sex: Female
  Weight: 94.35 kg

DRUGS (1)
  1. PAXLOVID [Suspect]
     Active Substance: NIRMATRELVIR\RITONAVIR
     Indication: COVID-19 treatment
     Dosage: UNK
     Dates: start: 20231223

REACTIONS (4)
  - Dysgeusia [Unknown]
  - Dry mouth [Unknown]
  - Diarrhoea [Unknown]
  - Tongue coated [Unknown]

NARRATIVE: CASE EVENT DATE: 20231201
